FAERS Safety Report 4487809-3 (Version None)
Quarter: 2004Q4

REPORT INFORMATION
  Report Type: 
  Country: None (occurrence: None)
  Receive Date: 20041027
  Receipt Date: 20041027
  Transmission Date: 20050328
  Serious: No
  Sender: FDA-Public Use
  Company Number: None

PATIENT
  Age: 12 Year
  Sex: Female
  Weight: 31.7518 kg

DRUGS (1)
  1. DIFLUCAN [Suspect]
     Indication: RIFT VALLEY FEVER
     Dosage: 200 MG ONE PO QD
     Route: 048
     Dates: start: 20040301

REACTIONS (4)
  - DRY SKIN [None]
  - RASH [None]
  - SKIN FISSURES [None]
  - SWELLING [None]
